FAERS Safety Report 23788887 (Version 5)
Quarter: 2025Q1

REPORT INFORMATION
  Report Type: Report from Study
  Country: BE (occurrence: BE)
  Receive Date: 20240426
  Receipt Date: 20250128
  Transmission Date: 20250409
  Serious: Yes (Hospitalization, Other)
  Sender: JOHNSON AND JOHNSON
  Company Number: BE-JNJFOC-20220925412

PATIENT
  Age: 3 Decade
  Sex: Female
  Weight: 43 kg

DRUGS (27)
  1. SELEXIPAG [Suspect]
     Active Substance: SELEXIPAG
     Indication: Pulmonary arterial hypertension
     Route: 048
  2. SELEXIPAG [Suspect]
     Active Substance: SELEXIPAG
     Indication: Pulmonary hypertension
     Route: 048
     Dates: start: 20210606, end: 20210613
  3. SELEXIPAG [Suspect]
     Active Substance: SELEXIPAG
     Route: 048
     Dates: start: 20210613, end: 20210620
  4. SELEXIPAG [Suspect]
     Active Substance: SELEXIPAG
     Route: 048
     Dates: start: 20210620, end: 20210706
  5. SELEXIPAG [Suspect]
     Active Substance: SELEXIPAG
     Route: 048
     Dates: start: 20210706, end: 20210716
  6. SELEXIPAG [Suspect]
     Active Substance: SELEXIPAG
     Route: 048
     Dates: start: 20210716, end: 20210927
  7. SELEXIPAG [Suspect]
     Active Substance: SELEXIPAG
     Route: 048
     Dates: start: 20230307, end: 20230313
  8. SELEXIPAG [Suspect]
     Active Substance: SELEXIPAG
     Route: 048
     Dates: start: 20210608, end: 20210928
  9. MACITENTAN [Suspect]
     Active Substance: MACITENTAN
     Indication: Pulmonary hypertension
     Route: 048
     Dates: start: 20210114
  10. MACITENTAN [Suspect]
     Active Substance: MACITENTAN
     Indication: Pulmonary hypertension
     Route: 065
     Dates: start: 20210502, end: 20211102
  11. SILDENAFIL [Concomitant]
     Active Substance: SILDENAFIL
     Indication: Pulmonary hypertension
     Route: 048
     Dates: start: 20200708
  12. SILDENAFIL [Concomitant]
     Active Substance: SILDENAFIL
     Route: 048
     Dates: start: 20230810
  13. BILASTINE [Concomitant]
     Active Substance: BILASTINE
     Indication: Atopy
     Dates: start: 20200811
  14. BILASTINE [Concomitant]
     Active Substance: BILASTINE
     Indication: Asthma
  15. OXYGEN [Concomitant]
     Active Substance: OXYGEN
     Indication: Pulmonary hypertension
     Dates: start: 20210519
  16. BECLOMETHASONE DIPROPIONATE\FORMOTEROL FUMARATE [Concomitant]
     Active Substance: BECLOMETHASONE DIPROPIONATE\FORMOTEROL FUMARATE
     Indication: Pulmonary hypertension
  17. REVATIO [Concomitant]
     Active Substance: SILDENAFIL CITRATE
     Indication: Pulmonary hypertension
     Dates: start: 20200708
  18. PHENPROCOUMON [Concomitant]
     Active Substance: PHENPROCOUMON
     Indication: Pulmonary hypertension
     Dates: start: 20211012
  19. PHENPROCOUMON [Concomitant]
     Active Substance: PHENPROCOUMON
     Indication: Transient ischaemic attack
  20. MIRENA [Concomitant]
     Active Substance: LEVONORGESTREL
     Indication: Contraception
     Dates: start: 2016
  21. VELETRI [Concomitant]
     Active Substance: EPOPROSTENOL
     Indication: Pulmonary arterial hypertension
     Route: 042
     Dates: start: 20210928, end: 20211001
  22. VELETRI [Concomitant]
     Active Substance: EPOPROSTENOL
     Route: 042
     Dates: start: 20211001, end: 20221004
  23. VELETRI [Concomitant]
     Active Substance: EPOPROSTENOL
     Route: 042
     Dates: start: 20211001, end: 20211011
  24. VELETRI [Concomitant]
     Active Substance: EPOPROSTENOL
     Route: 042
     Dates: start: 20211130, end: 20211203
  25. VELETRI [Concomitant]
     Active Substance: EPOPROSTENOL
     Route: 042
     Dates: start: 20211203, end: 20220107
  26. VELETRI [Concomitant]
     Active Substance: EPOPROSTENOL
     Route: 042
     Dates: start: 20220107, end: 20220124
  27. VELETRI [Concomitant]
     Active Substance: EPOPROSTENOL
     Route: 042
     Dates: start: 20211011, end: 20211130

REACTIONS (22)
  - Supraventricular tachycardia [Recovered/Resolved with Sequelae]
  - Thrombocytopenia [Not Recovered/Not Resolved]
  - Hypoglycaemia [Recovered/Resolved]
  - Polyuria [Not Recovered/Not Resolved]
  - Vocal cord paralysis [Not Recovered/Not Resolved]
  - Respiratory tract infection [Recovered/Resolved]
  - Chest pain [Recovered/Resolved with Sequelae]
  - Palpitations [Recovered/Resolved with Sequelae]
  - Micturition urgency [Recovered/Resolved with Sequelae]
  - Vertigo [Recovered/Resolved with Sequelae]
  - Abdominal pain upper [Unknown]
  - COVID-19 [Recovered/Resolved]
  - Vulvovaginal candidiasis [Recovered/Resolved]
  - Ovarian cyst [Not Recovered/Not Resolved]
  - Cystitis [Recovered/Resolved]
  - Dyspepsia [Not Recovered/Not Resolved]
  - Dizziness [Unknown]
  - Extrasystoles [Not Recovered/Not Resolved]
  - Nausea [Not Recovered/Not Resolved]
  - Decreased appetite [Unknown]
  - Abdominal pain upper [Unknown]
  - Diarrhoea [Unknown]

NARRATIVE: CASE EVENT DATE: 20220103
